FAERS Safety Report 25229594 (Version 1)
Quarter: 2025Q2

REPORT INFORMATION
  Report Type: Spontaneous
  Country: US (occurrence: US)
  Receive Date: 20250423
  Receipt Date: 20250423
  Transmission Date: 20250716
  Serious: Yes (Hospitalization)
  Sender: Steriscience PTE
  Company Number: US-STERISCIENCE B.V.-2025-ST-000774

PATIENT
  Age: 50 Year
  Sex: Male

DRUGS (7)
  1. MIDAZOLAM [Suspect]
     Active Substance: MIDAZOLAM
     Indication: Alcohol withdrawal syndrome
     Route: 042
  2. FENTANYL [Suspect]
     Active Substance: FENTANYL
     Indication: Alcohol withdrawal syndrome
     Route: 065
  3. FENTANYL [Suspect]
     Active Substance: FENTANYL
     Indication: Product used for unknown indication
     Dosage: 100 MICROGRAM, QH, INFUSION
     Route: 065
  4. HYDROMORPHONE [Suspect]
     Active Substance: HYDROMORPHONE
     Indication: Alcohol withdrawal syndrome
     Dosage: INFUSION
     Route: 065
  5. PROPOFOL [Suspect]
     Active Substance: PROPOFOL
     Indication: Alcohol withdrawal syndrome
     Dosage: INFUSION
     Route: 065
  6. BUPRENORPHINE [Concomitant]
     Active Substance: BUPRENORPHINE
     Indication: Drug use disorder
     Route: 065
  7. NALOXONE [Concomitant]
     Active Substance: NALOXONE
     Indication: Drug use disorder
     Route: 065

REACTIONS (3)
  - Agitation [None]
  - Withdrawal syndrome [None]
  - Off label use [Unknown]
